FAERS Safety Report 4299161-7 (Version None)
Quarter: 2004Q1

REPORT INFORMATION
  Report Type: 
  Country: None (occurrence: None)
  Receive Date: 20040217
  Receipt Date: 20040204
  Transmission Date: 20041129
  Serious: Yes (Hospitalization)
  Sender: FDA-Public Use
  Company Number: MK200402-0104-1

PATIENT
  Age: 63 Year
  Sex: Female

DRUGS (5)
  1. TOFRANIL TAB [Suspect]
     Dosage: 100MG, DAILY
     Dates: start: 20020418, end: 20030906
  2. SEREPAX [Concomitant]
  3. OROXINE [Concomitant]
  4. ORUDIS [Concomitant]
  5. TRAMAL-SLOW RELEASE [Suspect]
     Dates: start: 20020502, end: 20030508

REACTIONS (5)
  - CONFUSIONAL STATE [None]
  - DELUSION [None]
  - DISORIENTATION [None]
  - DRUG INTERACTION [None]
  - MEMORY IMPAIRMENT [None]
